FAERS Safety Report 19982834 (Version 1)
Quarter: 2021Q4

REPORT INFORMATION
  Report Type: Report from Study
  Country: None (occurrence: US)
  Receive Date: 20211022
  Receipt Date: 20211022
  Transmission Date: 20220303
  Serious: Yes (Disabling)
  Sender: FDA-Public Use
  Company Number: US-ABBVIE-21K-163-4124563-00

PATIENT
  Age: 65 Year
  Sex: Male
  Weight: 70.37 kg

DRUGS (1)
  1. HUMIRA [Suspect]
     Active Substance: ADALIMUMAB
     Indication: Rheumatoid arthritis
     Route: 058
     Dates: start: 20200605, end: 20210921

REACTIONS (2)
  - Hypoacusis [Unknown]
  - Tendon rupture [Unknown]

NARRATIVE: CASE EVENT DATE: 20210801
